FAERS Safety Report 14375031 (Version 6)
Quarter: 2022Q2

REPORT INFORMATION
  Report Type: Spontaneous
  Country: US (occurrence: US)
  Receive Date: 20180111
  Receipt Date: 20220602
  Transmission Date: 20220721
  Serious: No
  Sender: FDA-Public Use
  Company Number: US-PFIZER INC-2018013927

PATIENT
  Age: 59 Year
  Sex: Female
  Weight: 91 kg

DRUGS (2)
  1. XELJANZ XR [Suspect]
     Active Substance: TOFACITINIB CITRATE
     Indication: Rheumatoid arthritis
     Dosage: 11 MG, 1X/DAY
     Route: 048
     Dates: start: 201712
  2. XELJANZ XR [Suspect]
     Active Substance: TOFACITINIB CITRATE
     Dosage: 1 DF, DAILY (1TABLET (11 MG TOTAL))
     Route: 048

REACTIONS (7)
  - Vomiting [Recovered/Resolved]
  - Asthenia [Recovered/Resolved]
  - Dizziness postural [Recovered/Resolved]
  - Gastroenteritis [Recovered/Resolved]
  - Dehydration [Recovered/Resolved]
  - Oropharyngeal pain [Recovered/Resolved]
  - Product prescribing issue [Unknown]

NARRATIVE: CASE EVENT DATE: 20180101
